FAERS Safety Report 10374591 (Version 1)
Quarter: 2014Q1

REPORT INFORMATION
  Report Type: Spontaneous
  Country: US (occurrence: None)
  Receive Date: 20140306
  Receipt Date: 20140306
  Transmission Date: 20141002
  Serious: Yes (Other)
  Sender: FDA-Public Use
  Company Number: 163-21880-12110351

PATIENT
  Age: 65 Year
  Sex: Female

DRUGS (16)
  1. REVLIMID (LENALIDOMIDE) (15 MILLIGRAM, CAPSULES) [Suspect]
     Indication: PLASMA CELL MYELOMA
     Dosage: 15 MG, 21 IN 28 D, PO
     Route: 048
     Dates: start: 20121003
  2. SINGULAIR (MONTELUKAST SODIUM) (UNKNOWN) [Concomitant]
  3. FERROUS SULFATE (FERROUS SULFATE) (UNKNOWN) [Concomitant]
  4. POTASSIUM CHLORIDE (POTASSIUM CHLORIDE) (UNKNOWN) [Concomitant]
  5. CALCIUM (CALCIUM) (UNKNOWN) [Concomitant]
  6. PRILOSEC (OMEPRAZOLE) (UNKNOWN) [Concomitant]
  7. COUMADIN (WARFARIN SODIUM) (UNKNOWN) [Concomitant]
  8. LISINOPRIL (LISINOPRIL) (UNKNOWN) (LISINOPRIL) [Concomitant]
  9. ASPIRIN (ACETYLSALICYLIC ACID) (UNKNOWN) (ACETYLSALICYLIC ACID) [Concomitant]
  10. LEVOTHYROXINE (LEVOTHYROXINE) (UNKNOWN) [Concomitant]
  11. HYDROCODONE (HYDROCODONE) (UNKNOWN) [Concomitant]
  12. CLONAZEPAM (CLONAZEPAM) (UNKNOWN) [Concomitant]
  13. PERCOCET (OXYCOCET) (UNKNOWN) [Concomitant]
  14. SIMVASTATIN (SIMVASTATIN) (UNKNOWN) [Concomitant]
  15. LORATADINE (LORATADINE) (UNKNOWN) [Concomitant]
  16. FUROSEMIDE (FUROSEMIDE) (UNKNOWN) [Concomitant]

REACTIONS (3)
  - Bronchitis [None]
  - Sinusitis [None]
  - Urinary tract infection [None]
